FAERS Safety Report 13819929 (Version 1)
Quarter: 2017Q3

REPORT INFORMATION
  Report Type: Spontaneous
  Country: CH (occurrence: None)
  Receive Date: 20170731
  Receipt Date: 20170731
  Transmission Date: 20171127
  Serious: Yes (Other)
  Sender: FDA-Public Use
  Company Number: 20171026

PATIENT
  Age: 20 Year
  Sex: Female

DRUGS (2)
  1. FERINJECT [Suspect]
     Active Substance: FERRIC CARBOXYMALTOSE
     Indication: FATIGUE
     Route: 041
     Dates: start: 20170703, end: 20170703
  2. FERINJECT [Suspect]
     Active Substance: FERRIC CARBOXYMALTOSE
     Indication: SERUM FERRITIN DECREASED
     Route: 041
     Dates: start: 20170703, end: 20170703

REACTIONS (5)
  - Erythema [None]
  - Pruritus generalised [None]
  - Rash [None]
  - Anxiety [None]
  - Dyspnoea [None]

NARRATIVE: CASE EVENT DATE: 20170703
